FAERS Safety Report 9191363 (Version 1)
Quarter: 2013Q1

REPORT INFORMATION
  Report Type: Spontaneous
  Country: US (occurrence: US)
  Receive Date: 20130326
  Receipt Date: 20130326
  Transmission Date: 20140127
  Serious: No
  Sender: FDA-Public Use
  Company Number: US-B.I. PHARMACEUTICALS,INC./RIDGEFIELD-2013-BI-07537BP

PATIENT
  Sex: Male
  Weight: 75 kg

DRUGS (9)
  1. PRADAXA [Suspect]
     Dosage: 300 MG
     Route: 048
     Dates: end: 201303
  2. PRADAXA [Suspect]
     Dosage: 150 MG
     Route: 048
     Dates: start: 201303
  3. SIMVASTATIN [Concomitant]
     Dosage: 40 MG
     Route: 048
  4. FOLIC ACID [Concomitant]
     Dosage: 1 MG
     Route: 048
  5. NITROGLYCERIN [Concomitant]
  6. LISINOPRIL [Concomitant]
     Dosage: 10 MG
     Route: 048
  7. DIGOXIN [Concomitant]
     Dosage: 0.25 MG
     Route: 048
  8. FINASTERIDE [Concomitant]
     Route: 048
  9. TAMSULOSIN [Concomitant]
     Dosage: 4 MG
     Route: 048

REACTIONS (1)
  - Renal function test abnormal [Recovered/Resolved]
